FAERS Safety Report 9192003 (Version 2)
Quarter: 2013Q2

REPORT INFORMATION
  Report Type: Spontaneous
  Country: NZ (occurrence: None)
  Receive Date: 20130325
  Receipt Date: 20130418
  Transmission Date: 20140414
  Serious: Yes (Other)
  Sender: FDA-Public Use
  Company Number: VAL_02233_2013

PATIENT
  Age: 85 Year
  Sex: Female

DRUGS (7)
  1. METOPROLOL [Suspect]
     Indication: PRODUCT USED FOR UNKNOWN INDICATION
     Dosage: (DF)
     Dates: start: 201212, end: 20121224
  2. GLIVEC [Suspect]
     Indication: CHRONIC MYELOID LEUKAEMIA
     Route: 048
     Dates: start: 20110101
  3. OMEPRAZOLE [Concomitant]
  4. CODEINE [Concomitant]
  5. DICLOFENAC [Concomitant]
  6. ASPIRIN [Concomitant]
  7. INHIBACE PLUS [Concomitant]

REACTIONS (7)
  - Confusional state [None]
  - Accident [None]
  - Limb injury [None]
  - Muscle injury [None]
  - Heart rate irregular [None]
  - Iron deficiency [None]
  - Vitamin B12 deficiency [None]
